FAERS Safety Report 10273145 (Version 1)
Quarter: 2014Q3

REPORT INFORMATION
  Report Type: Spontaneous
  Country: US (occurrence: US)
  Receive Date: 20140702
  Receipt Date: 20140702
  Transmission Date: 20150326
  Serious: No
  Sender: FDA-Public Use
  Company Number: US-ROXANE LABORATORIES, INC.-2014-RO-01011RO

PATIENT
  Age: 6 Year
  Sex: Female

DRUGS (2)
  1. BALSALAZIDE [Suspect]
     Active Substance: BALSALAZIDE
     Indication: PROCTITIS ULCERATIVE
     Dosage: 1500 MG
     Route: 048
     Dates: start: 20140530
  2. MIRALAX [Concomitant]
     Active Substance: POLYETHYLENE GLYCOL 3350
     Indication: CONSTIPATION
     Route: 065

REACTIONS (3)
  - Nausea [Not Recovered/Not Resolved]
  - Aphthous stomatitis [Recovered/Resolved]
  - Oropharyngeal pain [Not Recovered/Not Resolved]

NARRATIVE: CASE EVENT DATE: 201406
